FAERS Safety Report 17463286 (Version 1)
Quarter: 2020Q1

REPORT INFORMATION
  Report Type: Spontaneous
  Country: FR (occurrence: FR)
  Receive Date: 20200226
  Receipt Date: 20200226
  Transmission Date: 20200409
  Serious: Yes (Other)
  Sender: FDA-Public Use
  Company Number: FR-MYLANLABS-2020M1020553

PATIENT
  Age: 24 Year
  Sex: Female

DRUGS (4)
  1. PARACETAMOL [Concomitant]
     Active Substance: ACETAMINOPHEN
     Indication: DENTAL OPERATION
     Dosage: 1 GRAM, Q6H
     Route: 048
     Dates: start: 20190906
  2. CLAMOXYL                           /00249602/ [Concomitant]
     Active Substance: AMOXICILLIN
     Indication: DENTAL OPERATION
     Dosage: UNK
     Route: 048
     Dates: start: 20190906
  3. FLANID [Concomitant]
     Active Substance: TIAPROFENIC ACID
     Indication: DENTAL OPERATION
     Dosage: UNK
     Route: 048
     Dates: start: 20190906
  4. TRAMADOL. [Suspect]
     Active Substance: TRAMADOL
     Indication: PROCEDURAL PAIN
     Dosage: 1 DOSAGE FORM, TOTAL
     Route: 048
     Dates: start: 20190909, end: 20190909

REACTIONS (4)
  - Nausea [Recovered/Resolved]
  - Malaise [Recovered/Resolved]
  - Arrested labour [Recovered/Resolved]
  - Vomiting [Recovered/Resolved]

NARRATIVE: CASE EVENT DATE: 20190910
